FAERS Safety Report 7103861-0 (Version None)
Quarter: 2010Q4

REPORT INFORMATION
  Report Type: 
  Country: None (occurrence: None)
  Receive Date: 20101115
  Receipt Date: 20101102
  Transmission Date: 20110411
  Serious: Yes (Hospitalization, Other)
  Sender: FDA-Public Use
  Company Number: PHHY2010JP65442

PATIENT
  Sex: Male
  Weight: 55 kg

DRUGS (2)
  1. AFINITOR [Suspect]
     Indication: RENAL CELL CARCINOMA
     Dosage: 10 MG, DAILY
     Route: 048
     Dates: start: 20100811, end: 20100901
  2. TANATRIL ^ALGOL^ [Concomitant]
     Dosage: 5 MG, UNK
     Route: 048
     Dates: start: 20100901, end: 20101101

REACTIONS (4)
  - ANAEMIA [None]
  - MALAISE [None]
  - MALIGNANT NEOPLASM PROGRESSION [None]
  - PLEURAL EFFUSION [None]
